FAERS Safety Report 8748636 (Version 3)
Quarter: 2014Q1

REPORT INFORMATION
  Report Type: Report from Study
  Country: US (occurrence: US)
  Receive Date: 20120827
  Receipt Date: 20140203
  Transmission Date: 20141002
  Serious: Yes (Hospitalization)
  Sender: FDA-Public Use
  Company Number: US-ROCHE-1106863

PATIENT
  Age: 64 Year
  Sex: Male
  Weight: 93.98 kg

DRUGS (3)
  1. RITUXIMAB [Suspect]
     Indication: CHRONIC LYMPHOCYTIC LEUKAEMIA
     Route: 042
     Dates: start: 20110816, end: 20120103
  2. FLUDARABINE [Suspect]
     Indication: CHRONIC LYMPHOCYTIC LEUKAEMIA
     Dosage: DAY1, 2, 3 Q MONTH
     Route: 042
     Dates: start: 20110816, end: 20120105
  3. CYCLOPHOSPHAMIDE [Suspect]
     Indication: CHRONIC LYMPHOCYTIC LEUKAEMIA
     Dosage: DAY1, 2, 3 Q MONTH
     Route: 042
     Dates: start: 20110816, end: 20120105

REACTIONS (4)
  - Anaemia [Recovered/Resolved]
  - Intussusception [Recovered/Resolved]
  - Renal failure chronic [Recovered/Resolved]
  - Chronic obstructive pulmonary disease [Recovered/Resolved]
